FAERS Safety Report 10509279 (Version 1)
Quarter: 2014Q3

REPORT INFORMATION
  Report Type: Spontaneous
  Country: US (occurrence: None)
  Receive Date: 20140915
  Receipt Date: 20140915
  Transmission Date: 20150326
  Serious: Yes (Other)
  Sender: FDA-Public Use
  Company Number: 2014-US-003407

PATIENT
  Age: 54 Year
  Sex: Female
  Weight: 61.7 kg

DRUGS (7)
  1. ALLEGRA (FEXOFENADINE HYDROCHLORIDE) [Concomitant]
  2. RESTASIS (CICLOSPORIN) [Concomitant]
  3. XYREM [Suspect]
     Active Substance: SODIUM OXYBATE
     Indication: HYPERSOMNIA
     Route: 048
     Dates: start: 200611, end: 2006
  4. VYVANSE [Concomitant]
     Active Substance: LISDEXAMFETAMINE DIMESYLATE
  5. MULTIVITAMIN (VITAMINS NOS) [Concomitant]
     Active Substance: VITAMINS
  6. CALCIUM WITH VITAMIN D (CALCIUM CARBONATE, COLECALCIFEROL) [Concomitant]
  7. MAXALT (RIZATRIPTAN BENZOATE) [Concomitant]
     Active Substance: RIZATRIPTAN BENZOATE

REACTIONS (6)
  - Off label use [None]
  - Hypertension [None]
  - Skin discolouration [None]
  - Headache [None]
  - Dizziness postural [None]
  - Oedema peripheral [None]

NARRATIVE: CASE EVENT DATE: 20140127
